FAERS Safety Report 4663390-0 (Version None)
Quarter: 2005Q2

REPORT INFORMATION
  Report Type: 
  Country: None (occurrence: None)
  Receive Date: 20050517
  Receipt Date: 20050506
  Transmission Date: 20051028
  Serious: Yes (Other)
  Sender: FDA-Public Use
  Company Number: GBWYE649409MAY05

PATIENT
  Age: 47 Year

DRUGS (3)
  1. ENBREL [Suspect]
     Indication: ARTHRITIS
     Route: 058
     Dates: start: 20040423, end: 20040601
  2. RANITIDINE [Concomitant]
     Dosage: 300 (UNITS AND FREQUENCY UNKNOWN)
     Dates: start: 20040101
  3. CELECOXIB [Concomitant]
     Indication: ARTHRITIS
     Dosage: 100 (UNITS AND FREQUENCY UNSPECIFIED)
     Route: 048
     Dates: start: 20040101

REACTIONS (3)
  - CELLULITIS [None]
  - JOINT ABSCESS [None]
  - PARAPROTEINAEMIA [None]
